FAERS Safety Report 6046848-1 (Version None)
Quarter: 2009Q1

REPORT INFORMATION
  Report Type: 
  Country: None (occurrence: None)
  Receive Date: 20090122
  Receipt Date: 20090116
  Transmission Date: 20090719
  Serious: Yes (Other)
  Sender: FDA-Public Use
  Company Number: A0764386A

PATIENT
  Age: 62 Year
  Sex: Female
  Weight: 61.4 kg

DRUGS (1)
  1. AVANDIA [Suspect]
     Dosage: 4MG TWICE PER DAY
     Route: 048

REACTIONS (5)
  - CHEST PAIN [None]
  - DYSPNOEA [None]
  - FATIGUE [None]
  - FLUID RETENTION [None]
  - HEART INJURY [None]
